APPROVED DRUG PRODUCT: SUFLAVE
Active Ingredient: MAGNESIUM SULFATE; POLYETHYLENE GLYCOL 3350; POTASSIUM CHLORIDE; SODIUM CHLORIDE; SODIUM SULFATE
Strength: 0.9GM/BOT;178.7GM/BOT;1.12GM/BOT;0.5GM/BOT;7.3GM/BOT
Dosage Form/Route: FOR SOLUTION;ORAL
Application: N215344 | Product #001
Applicant: AZURITY PHARMACEUTICALS INC
Approved: Jun 15, 2023 | RLD: Yes | RS: Yes | Type: RX

PATENTS:
Patent 12433914 | Expires: Jun 14, 2044
Patent 12239659 | Expires: Jun 14, 2044
Patent 12290529 | Expires: Aug 2, 2044

EXCLUSIVITY:
Code: NP | Date: Jun 15, 2026